FAERS Safety Report 8816691 (Version 2)
Quarter: 2012Q4

REPORT INFORMATION
  Report Type: Spontaneous
  Country: US (occurrence: None)
  Receive Date: 20120928
  Receipt Date: 20121204
  Transmission Date: 20130627
  Serious: Yes (Death, Hospitalization)
  Sender: FDA-Public Use
  Company Number: 2012PL000161

PATIENT
  Age: 40 Year
  Sex: Male
  Weight: 82.1 kg

DRUGS (3)
  1. PROLEUKIN [Suspect]
     Indication: SYNOVIAL SARCOMA METASTATIC
     Dosage: 1 DF
     Dates: start: 20120801, end: 20120801
  2. CYCLOPHOSPHAMIDE [Suspect]
     Indication: SYNOVIAL SARCOMA METASTATIC
     Dates: start: 20120725
  3. LYMPHOCYTES [Suspect]
     Indication: SYNOVIAL SARCOMA METASTATIC
     Route: 042
     Dates: start: 20120801, end: 20120801

REACTIONS (27)
  - Mental status changes [None]
  - Blood creatinine increased [None]
  - Confusional state [None]
  - Oxygen saturation decreased [None]
  - Tachycardia [None]
  - Urine output decreased [None]
  - Respiratory failure [None]
  - Hypotension [None]
  - Ventricular hypokinesia [None]
  - Renal failure [None]
  - Blood pressure systolic decreased [None]
  - Unresponsive to stimuli [None]
  - Multi-organ failure [None]
  - Escherichia sepsis [None]
  - Neutropenia [None]
  - Lung disorder [None]
  - Cardio-respiratory arrest [None]
  - Mass [None]
  - Pulmonary oedema [None]
  - Pancreatic cyst [None]
  - Pleural effusion [None]
  - Skin haemorrhage [None]
  - Gastrointestinal infection [None]
  - Petechiae [None]
  - Intestinal ulcer [None]
  - Ascites [None]
  - Bacterial test positive [None]
